FAERS Safety Report 7013156-1 (Version None)
Quarter: 2010Q3

REPORT INFORMATION
  Report Type: 
  Country: None (occurrence: None)
  Receive Date: 20100924
  Receipt Date: 20100915
  Transmission Date: 20110219
  Serious: Yes (Hospitalization, Other)
  Sender: FDA-Public Use
  Company Number: BR-PFIZER INC-2010117203

PATIENT
  Age: 15 Year
  Sex: Female
  Weight: 30 kg

DRUGS (2)
  1. DEPO-PROVERA [Suspect]
     Indication: OFF LABEL USE
     Dosage: 150 MG, EVERY 15 DAYS
     Route: 030
     Dates: start: 20040101, end: 20040101
  2. DEPO-PROVERA [Suspect]
     Indication: UTERINE CYST

REACTIONS (10)
  - BLINDNESS UNILATERAL [None]
  - COMA [None]
  - HEADACHE [None]
  - HORMONE LEVEL ABNORMAL [None]
  - METRORRHAGIA [None]
  - PALLOR [None]
  - PITUITARY TUMOUR RECURRENT [None]
  - SOMNOLENCE [None]
  - VOMITING [None]
  - WEIGHT INCREASED [None]
